FAERS Safety Report 8498051 (Version 2)
Quarter: 2012Q4

REPORT INFORMATION
  Report Type: 
  Country: US (occurrence: US)
  Receive Date: 20120406
  Receipt Date: 20120926
  Transmission Date: 20130627
  Serious: Yes (Hospitalization, Other)
  Sender: FDA-Public Use
  Company Number: US-US-EMD SERONO, INC.-7123121

PATIENT
  Age: 43 None
  Sex: Female

DRUGS (2)
  1. REBIF [Suspect]
     Indication: MULTIPLE SCLEROSIS
     Route: 058
     Dates: start: 20110615, end: 20120220
  2. REBIF [Suspect]
     Route: 058

REACTIONS (2)
  - Bundle branch block left [Unknown]
  - Multiple sclerosis relapse [Recovered/Resolved]
